FAERS Safety Report 7631582-4 (Version None)
Quarter: 2011Q3

REPORT INFORMATION
  Report Type: 
  Country: None (occurrence: None)
  Receive Date: 20110725
  Receipt Date: 20110715
  Transmission Date: 20111222
  Serious: Yes (Hospitalization)
  Sender: FDA-Public Use
  Company Number: SE-SANOFI-AVENTIS-2011SA039612

PATIENT
  Age: 75 Year
  Sex: Male

DRUGS (14)
  1. THERAPEUTIC RADIOPHARMACEUTICALS [Suspect]
     Dosage: DOSAGE 45 GY
     Route: 065
     Dates: start: 20110509, end: 20110603
  2. OMEPRAZOLE [Concomitant]
  3. LOPERAMIDE [Concomitant]
     Dates: start: 20110209
  4. OXALIPLATIN [Suspect]
     Route: 042
  5. CAPECITABINE [Suspect]
     Dosage: DOSE AT 1300 MG TWICE A DAY FOR 2 WEEKS, 3 WEEKS AND TWICE A DAY 5 TIMES A WEEK FOR 5 WEEKS
     Route: 048
     Dates: start: 20110105
  6. PRIMPERAN TAB [Concomitant]
     Dates: start: 20110329
  7. THERAPEUTIC RADIOPHARMACEUTICALS [Suspect]
     Dosage: DOSAGE 45 GY
     Route: 065
  8. ENALAPRIL MALEATE [Concomitant]
  9. OXALIPLATIN [Suspect]
     Dosage: LAST DOSE PRIOR TO DISCONTINUATION RECEIVED ON 02-JUN-2011
     Route: 042
     Dates: start: 20110105
  10. EPIRUBICIN [Suspect]
     Dosage: LAST DOSE BEFORE DISCONTINUATION RECEIVED ON 02-JUN-2011
     Route: 042
     Dates: start: 20110105
  11. SIMVASTATIN [Concomitant]
  12. CISPLATIN [Suspect]
     Route: 042
     Dates: start: 20110509, end: 20110601
  13. AMLODIPINE [Concomitant]
  14. METOPROLOL TARTRATE [Concomitant]
     Dates: start: 20110329, end: 20110604

REACTIONS (4)
  - MUCOSAL INFLAMMATION [None]
  - HYPOCALCAEMIA [None]
  - DYSPHAGIA [None]
  - OESOPHAGITIS [None]
